FAERS Safety Report 20613430 (Version 1)
Quarter: 2022Q1

REPORT INFORMATION
  Report Type: Spontaneous
  Country: FR (occurrence: FR)
  Receive Date: 20220319
  Receipt Date: 20220319
  Transmission Date: 20220423
  Serious: Yes (Hospitalization)
  Sender: FDA-Public Use
  Company Number: FR-AFSSAPS-MP20220475

PATIENT
  Age: 87 Year
  Sex: Male

DRUGS (1)
  1. SOTALOL [Suspect]
     Active Substance: SOTALOL
     Indication: Product used for unknown indication
     Dosage: 80 MILLIGRAM
     Route: 048
     Dates: start: 20211228

REACTIONS (2)
  - Hepatic function abnormal [Recovered/Resolved]
  - Intentional overdose [Recovered/Resolved]

NARRATIVE: CASE EVENT DATE: 20211226
